FAERS Safety Report 19709369 (Version 2)
Quarter: 2021Q3

REPORT INFORMATION
  Report Type: Spontaneous
  Country: US (occurrence: US)
  Receive Date: 20210817
  Receipt Date: 20210906
  Transmission Date: 20211014
  Serious: No
  Sender: FDA-Public Use
  Company Number: US-TEVA-2021-US-1943009

PATIENT
  Age: 62 Year
  Sex: Female

DRUGS (7)
  1. PROAIR HFA [Suspect]
     Active Substance: ALBUTEROL SULFATE
     Route: 065
  2. PROAIR HFA [Suspect]
     Active Substance: ALBUTEROL SULFATE
  3. QVAR [Suspect]
     Active Substance: BECLOMETHASONE DIPROPIONATE
  4. QVAR [Suspect]
     Active Substance: BECLOMETHASONE DIPROPIONATE
     Route: 065
  5. PROAIR HFA [Suspect]
     Active Substance: ALBUTEROL SULFATE
  6. QVAR [Suspect]
     Active Substance: BECLOMETHASONE DIPROPIONATE
  7. PROAIR HFA [Suspect]
     Active Substance: ALBUTEROL SULFATE

REACTIONS (2)
  - Dyspnoea [Unknown]
  - Cardiac disorder [Unknown]
